FAERS Safety Report 4715536-3 (Version None)
Quarter: 2005Q3

REPORT INFORMATION
  Report Type: 
  Country: None (occurrence: None)
  Receive Date: 20050715
  Receipt Date: 20050715
  Transmission Date: 20060218
  Serious: No
  Sender: FDA-Public Use
  Company Number: None

PATIENT

DRUGS (1)
  1. BUG + SUN FPS-30 [Suspect]
     Route: 061
     Dates: start: 20050709, end: 20050709

REACTIONS (3)
  - DIZZINESS [None]
  - MUSCLE SPASMS [None]
  - RETCHING [None]
